FAERS Safety Report 6131830-6 (Version None)
Quarter: 2009Q1

REPORT INFORMATION
  Report Type: 
  Country: None (occurrence: None)
  Receive Date: 20090323
  Receipt Date: 20090305
  Transmission Date: 20090719
  Serious: Yes (Hospitalization)
  Sender: FDA-Public Use
  Company Number: 2009AL001423

PATIENT
  Age: 87 Year
  Sex: Female

DRUGS (3)
  1. DIAZEPAM [Suspect]
     Indication: ANXIETY
     Dosage: 8 MG
  2. DIGOXIN [Suspect]
     Dosage: 62.5 MCG; QD
  3. AMITRIPTYLINE [Concomitant]

REACTIONS (5)
  - CARDIAC FAILURE [None]
  - COLITIS ULCERATIVE [None]
  - HALLUCINATIONS, MIXED [None]
  - HERPES ZOSTER [None]
  - LUNG DISORDER [None]
